FAERS Safety Report 23342242 (Version 3)
Quarter: 2023Q4

REPORT INFORMATION
  Report Type: Spontaneous
  Country: US (occurrence: US)
  Receive Date: 20231227
  Receipt Date: 20231229
  Transmission Date: 20240110
  Serious: Yes (Other)
  Sender: FDA-Public Use
  Company Number: US-IPSEN Group, Research and Development-2023-28015

PATIENT
  Sex: Male

DRUGS (2)
  1. SOHONOS [Suspect]
     Active Substance: PALOVAROTENE
     Indication: Fibrodysplasia ossificans progressiva
     Dosage: 1 CAPSULE (20MG) ONE TIME A DAY FOR 4 WEEKS
     Route: 048
  2. SOHONOS [Suspect]
     Active Substance: PALOVAROTENE
     Dosage: 1 CAPSULE (10MG) ONE TIME A DAY FOR 8 WEEKS
     Route: 048

REACTIONS (1)
  - Fibrodysplasia ossificans progressiva [Unknown]
